FAERS Safety Report 12457186 (Version 1)
Quarter: 2016Q2

REPORT INFORMATION
  Report Type: Spontaneous
  Country: SE (occurrence: SE)
  Receive Date: 20160610
  Receipt Date: 20160610
  Transmission Date: 20160815
  Serious: Yes (Congenital Anomaly)
  Sender: FDA-Public Use
  Company Number: SE-CONCORDIA PHARMACEUTICALS INC.-GSH201606-002904

PATIENT
  Age: 6 Year
  Sex: Male

DRUGS (1)
  1. PHENOBARBITAL HYOSCYAMINE ATROPINE SCOPOLAMINE [Suspect]
     Active Substance: ATROPINE SULFATE\HYOSCYAMINE SULFATE\PHENOBARBITAL\SCOPOLAMINE HYDROBROMIDE

REACTIONS (5)
  - Foetal exposure during pregnancy [Unknown]
  - Growth retardation [Unknown]
  - Intellectual disability [Unknown]
  - Psychomotor skills impaired [Unknown]
  - Premature baby [Unknown]
